FAERS Safety Report 12212217 (Version 1)
Quarter: 2016Q1

REPORT INFORMATION
  Report Type: Spontaneous
  Country: US (occurrence: US)
  Receive Date: 20160325
  Receipt Date: 20160325
  Transmission Date: 20160526
  Serious: No
  Sender: FDA-Public Use
  Company Number: US-BIOMARINAP-US-2016-109300

PATIENT
  Sex: Female

DRUGS (1)
  1. KUVAN [Suspect]
     Active Substance: SAPROPTERIN DIHYDROCHLORIDE
     Indication: PRODUCT USED FOR UNKNOWN INDICATION
     Dosage: 400 MG, QD
     Route: 065

REACTIONS (3)
  - Flushing [Recovered/Resolved]
  - Epistaxis [Recovered/Resolved]
  - Hypersensitivity [Unknown]
